FAERS Safety Report 15891204 (Version 2)
Quarter: 2019Q2

REPORT INFORMATION
  Report Type: Spontaneous
  Country: PL (occurrence: PL)
  Receive Date: 20190130
  Receipt Date: 20190412
  Transmission Date: 20190711
  Serious: Yes (Hospitalization, Other)
  Sender: FDA-Public Use
  Company Number: PL-MYLANLABS-2019M1007953

PATIENT
  Age: 61 Year
  Sex: Male

DRUGS (22)
  1. TACROLIMUS. [Suspect]
     Active Substance: TACROLIMUS
     Dosage: 2 MILLIGRAM
     Route: 065
     Dates: start: 201710
  2. TACROLIMUS. [Suspect]
     Active Substance: TACROLIMUS
     Dosage: 9 MILLIGRAM
     Route: 065
     Dates: start: 201710, end: 201710
  3. TACROLIMUS. [Suspect]
     Active Substance: TACROLIMUS
     Dosage: 10 MILLIGRAM
     Route: 065
     Dates: start: 201710, end: 201710
  4. MORPHINE [Suspect]
     Active Substance: MORPHINE
     Indication: PAIN
  5. PARACETAMOL [Suspect]
     Active Substance: ACETAMINOPHEN
     Indication: PAIN
     Dosage: UNK
     Dates: start: 201710
  6. PREDNISOLONE. [Suspect]
     Active Substance: PREDNISOLONE
     Dosage: 20 MILLIGRAM
     Route: 065
     Dates: start: 201710, end: 201710
  7. SULFAMETHOXAZOLE [Suspect]
     Active Substance: SULFAMETHOXAZOLE
     Indication: IMMUNOSUPPRESSION
     Dosage: UNK
  8. MYCOPHENOLATE MOFETIL. [Suspect]
     Active Substance: MYCOPHENOLATE MOFETIL
     Dosage: 2 MILLIGRAM
     Route: 065
     Dates: start: 201710, end: 201710
  9. TACROLIMUS. [Suspect]
     Active Substance: TACROLIMUS
     Indication: IMMUNOSUPPRESSION
     Dosage: UNK
     Dates: start: 201710
  10. PREDNISOLONE. [Suspect]
     Active Substance: PREDNISOLONE
     Indication: IMMUNOSUPPRESSION
     Dosage: UNK
     Dates: start: 201710
  11. PREDNISOLONE. [Suspect]
     Active Substance: PREDNISOLONE
     Dosage: 15 MILLIGRAM, QD
     Route: 065
     Dates: start: 201710
  12. TACROLIMUS. [Suspect]
     Active Substance: TACROLIMUS
     Dosage: 14 MILLIGRAM
     Route: 065
     Dates: start: 201710, end: 201710
  13. TACROLIMUS. [Suspect]
     Active Substance: TACROLIMUS
     Dosage: 14 MILLIGRAM, QD
     Route: 065
     Dates: start: 201710, end: 201710
  14. CEFTRIAXONE. [Suspect]
     Active Substance: CEFTRIAXONE
     Indication: IMMUNOSUPPRESSION
     Dosage: UNK
  15. MORPHINE [Suspect]
     Active Substance: MORPHINE
     Indication: IMMUNOSUPPRESSION
     Dosage: UNK
     Dates: start: 201710
  16. SIMULECT [Concomitant]
     Active Substance: BASILIXIMAB
     Indication: RENAL TRANSPLANT
  17. FUROSEMIDE. [Suspect]
     Active Substance: FUROSEMIDE
     Indication: PRODUCT USED FOR UNKNOWN INDICATION
     Dosage: UNK
     Route: 065
  18. VITAMIN D                          /00107901/ [Suspect]
     Active Substance: ERGOCALCIFEROL
     Indication: IMMUNOSUPPRESSION
     Dosage: UNK
  19. CALCIUM [Suspect]
     Active Substance: CALCIUM
     Indication: PRODUCT USED FOR UNKNOWN INDICATION
     Dosage: UNK
  20. MYCOPHENOLATE MOFETIL. [Suspect]
     Active Substance: MYCOPHENOLATE MOFETIL
     Indication: IMMUNOSUPPRESSION
     Dosage: UNK
     Dates: start: 201710
  21. MYCOPHENOLATE MOFETIL. [Suspect]
     Active Substance: MYCOPHENOLATE MOFETIL
     Dosage: 1500 MILLIGRAM
     Route: 065
  22. SIMULECT [Suspect]
     Active Substance: BASILIXIMAB
     Indication: IMMUNOSUPPRESSION
     Dosage: UNK
     Dates: start: 201710

REACTIONS (5)
  - Diarrhoea [Recovered/Resolved]
  - Sphincter of Oddi dysfunction [Unknown]
  - Pancreatitis acute [Recovering/Resolving]
  - Abdominal pain [Recovered/Resolved]
  - Delayed graft function [Unknown]

NARRATIVE: CASE EVENT DATE: 201710
